FAERS Safety Report 20677027 (Version 3)
Quarter: 2022Q2

REPORT INFORMATION
  Report Type: Spontaneous
  Country: BR (occurrence: BR)
  Receive Date: 20220406
  Receipt Date: 20220420
  Transmission Date: 20220720
  Serious: Yes (Hospitalization)
  Sender: FDA-Public Use
  Company Number: BR-VALIDUS PHARMACEUTICALS LLC-BR-VDP-2022-015251

PATIENT

DRUGS (2)
  1. LASIX [Suspect]
     Active Substance: FUROSEMIDE
     Indication: Hypertension
     Dosage: UNK UNK, Q12H
     Route: 065
     Dates: start: 202110, end: 20220203
  2. LASIX [Suspect]
     Active Substance: FUROSEMIDE
     Indication: Fluid retention

REACTIONS (3)
  - Peripheral swelling [Unknown]
  - Drug effect less than expected [Recovered/Resolved]
  - Drug ineffective [Unknown]

NARRATIVE: CASE EVENT DATE: 20220302
